FAERS Safety Report 7499835-0 (Version None)
Quarter: 2011Q2

REPORT INFORMATION
  Report Type: 
  Country: None (occurrence: None)
  Receive Date: 20110524
  Receipt Date: 20110523
  Transmission Date: 20111010
  Serious: Yes (Life-Threatening, Hospitalization, Other)
  Sender: FDA-Public Use
  Company Number: DE-ROCHE-778537

PATIENT
  Sex: Female
  Weight: 60 kg

DRUGS (1)
  1. ACTEMRA [Suspect]
     Indication: TEMPORAL ARTERITIS
     Route: 042
     Dates: start: 20110425

REACTIONS (2)
  - BONE MARROW TOXICITY [None]
  - AGRANULOCYTOSIS [None]
